FAERS Safety Report 7121972-0 (Version None)
Quarter: 2010Q4

REPORT INFORMATION
  Report Type: 
  Country: None (occurrence: None)
  Receive Date: 20101124
  Receipt Date: 20101116
  Transmission Date: 20110411
  Serious: Yes (Death, Hospitalization)
  Sender: FDA-Public Use
  Company Number: A0832354A

PATIENT
  Age: 62 Year
  Sex: Male
  Weight: 102.3 kg

DRUGS (9)
  1. AVANDIA [Suspect]
     Indication: DIABETES MELLITUS
     Dosage: 8MG PER DAY
     Route: 048
     Dates: start: 20060901, end: 20080229
  2. AVANDAMET [Suspect]
     Indication: DIABETES MELLITUS
     Route: 048
  3. DEMADEX [Concomitant]
  4. XANAX [Concomitant]
  5. SERTRALINE HYDROCHLORIDE [Concomitant]
  6. FLOMAX [Concomitant]
  7. PROTONIX [Concomitant]
  8. XOPENEX [Concomitant]
  9. CHANTIX [Concomitant]

REACTIONS (13)
  - ATRIAL FIBRILLATION [None]
  - CARDIAC ARREST [None]
  - CARDIAC FAILURE CONGESTIVE [None]
  - CARDIAC FUNCTION DISTURBANCE POSTOPERATIVE [None]
  - CHRONIC OBSTRUCTIVE PULMONARY DISEASE [None]
  - CONGESTIVE CARDIOMYOPATHY [None]
  - CORONARY ARTERY DISEASE [None]
  - CORONARY ARTERY OCCLUSION [None]
  - MITRAL VALVE INCOMPETENCE [None]
  - MYOCARDIAL INFARCTION [None]
  - PERIRECTAL ABSCESS [None]
  - TRICUSPID VALVE INCOMPETENCE [None]
  - VENTRICULAR TACHYCARDIA [None]
